FAERS Safety Report 4425337-1 (Version None)
Quarter: 2004Q3

REPORT INFORMATION
  Report Type: 
  Country: None (occurrence: None)
  Receive Date: 20040813
  Receipt Date: 20040804
  Transmission Date: 20050211
  Serious: Yes (Hospitalization)
  Sender: FDA-Public Use
  Company Number: US-JNJFOC-20040205651

PATIENT
  Sex: Male
  Weight: 73.94 kg

DRUGS (8)
  1. DURAGESIC [Suspect]
     Route: 062
     Dates: end: 20040225
  2. DURAGESIC [Suspect]
     Route: 062
     Dates: end: 20040225
  3. MONOPRIL [Concomitant]
     Route: 049
  4. TRAZODONE [Concomitant]
  5. HYDROCHLOROTHIAZIDE [Concomitant]
  6. STRATTERA [Concomitant]
  7. GABITRIL [Concomitant]
  8. ZOLOFT [Concomitant]

REACTIONS (17)
  - ABDOMINAL PAIN UPPER [None]
  - AGITATION [None]
  - CHEST PAIN [None]
  - CONFUSIONAL STATE [None]
  - HEADACHE [None]
  - HYPERSOMNIA [None]
  - HYPOKALAEMIA [None]
  - INSOMNIA [None]
  - MUSCLE TIGHTNESS [None]
  - MUSCLE TWITCHING [None]
  - NAUSEA [None]
  - NERVOUSNESS [None]
  - PAIN EXACERBATED [None]
  - PANIC ATTACK [None]
  - PYREXIA [None]
  - SCREAMING [None]
  - THERAPEUTIC RESPONSE DECREASED [None]
